FAERS Safety Report 11349402 (Version 1)
Quarter: 2015Q3

REPORT INFORMATION
  Report Type: Spontaneous
  Country: US (occurrence: None)
  Receive Date: 20150805
  Receipt Date: 20150805
  Transmission Date: 20151125
  Serious: Yes (Other)
  Sender: FDA-Public Use
  Company Number: None

PATIENT
  Age: 67 Year
  Sex: Female
  Weight: 72.58 kg

DRUGS (2)
  1. ESOMEPRAZOLE [Suspect]
     Active Substance: ESOMEPRAZOLE
     Indication: BARRETT^S OESOPHAGUS
     Route: 048
     Dates: start: 20150426, end: 20150506
  2. SIMVASTATIN ( [Concomitant]

REACTIONS (5)
  - Dyspepsia [None]
  - Tremor [None]
  - Odynophagia [None]
  - Regurgitation [None]
  - Dysphagia [None]

NARRATIVE: CASE EVENT DATE: 20150506
